FAERS Safety Report 6575610-6 (Version None)
Quarter: 2010Q1

REPORT INFORMATION
  Report Type: 
  Country: None (occurrence: None)
  Receive Date: 20100209
  Receipt Date: 20100202
  Transmission Date: 20100710
  Serious: Yes (Hospitalization)
  Sender: FDA-Public Use
  Company Number: B0617682A

PATIENT
  Sex: Male

DRUGS (2)
  1. AUGMENTIN '125' [Suspect]
     Dosage: 2G PER DAY
     Route: 048
     Dates: start: 20090515, end: 20090517
  2. FLUIFORT [Suspect]
     Indication: INFLUENZA LIKE ILLNESS
     Dosage: 2.7G PER DAY
     Route: 048
     Dates: start: 20090515, end: 20090517

REACTIONS (3)
  - DYSPNOEA [None]
  - OEDEMA [None]
  - URTICARIA [None]
